FAERS Safety Report 10275022 (Version 1)
Quarter: 2014Q3

REPORT INFORMATION
  Report Type: Spontaneous
  Country: BR (occurrence: BR)
  Receive Date: 20140703
  Receipt Date: 20140703
  Transmission Date: 20150326
  Serious: Yes (Death, Other)
  Sender: FDA-Public Use
  Company Number: BR-AMGEN INC.-BRASP2014049569

PATIENT
  Age: 79 Year
  Sex: Female
  Weight: 47 kg

DRUGS (4)
  1. TECNOMET                           /00113801/ [Concomitant]
     Active Substance: METHOTREXATE
     Dosage: UNK
  2. FOLIC ACID. [Concomitant]
     Active Substance: FOLIC ACID
     Dosage: UNK
  3. ENBREL [Suspect]
     Active Substance: ETANERCEPT
     Indication: RHEUMATOID ARTHRITIS
     Dosage: 50 MG, ONCE WEEKLY
     Route: 065
     Dates: start: 201405, end: 201406
  4. PREDNISONE. [Concomitant]
     Active Substance: PREDNISONE
     Dosage: UNK

REACTIONS (4)
  - Intestinal ischaemia [Fatal]
  - Cardiomegaly [Unknown]
  - Functional gastrointestinal disorder [Unknown]
  - Gastrointestinal necrosis [Unknown]
